FAERS Safety Report 7244166-7 (Version None)
Quarter: 2011Q1

REPORT INFORMATION
  Report Type: 
  Country: None (occurrence: None)
  Receive Date: 20110119
  Receipt Date: 20110119
  Transmission Date: 20110831
  Serious: Yes (Other)
  Sender: FDA-Public Use
  Company Number: None

PATIENT
  Age: 42 Year
  Sex: Female
  Weight: 49.8957 kg

DRUGS (1)
  1. TRIAD ALCOHOL PREP PADS NA TRIAD [Suspect]
     Indication: THERAPEUTIC SKIN CARE TOPICAL
     Dates: start: 20110113, end: 20110113

REACTIONS (4)
  - BLISTER [None]
  - APPLICATION SITE REACTION [None]
  - SWELLING FACE [None]
  - RASH ERYTHEMATOUS [None]
